FAERS Safety Report 22079506 (Version 1)
Quarter: 2023Q1

REPORT INFORMATION
  Report Type: Other
  Country: US (occurrence: None)
  Receive Date: 20230309
  Receipt Date: 20230309
  Transmission Date: 20230418
  Serious: Yes (Other)
  Sender: FDA-Public Use
  Company Number: US-ROCHE-3302839

PATIENT
  Sex: Female

DRUGS (4)
  1. OCREVUS [Suspect]
     Active Substance: OCRELIZUMAB
     Indication: Multiple sclerosis
     Dosage: INFUSE 300MG DAY 1 AND DAY 15 THEN 600MG Q6M
     Route: 042
     Dates: start: 20190508
  2. BACLOFEN [Concomitant]
     Active Substance: BACLOFEN
  3. CLONAZEPAM [Concomitant]
     Active Substance: CLONAZEPAM
  4. DULOXETINE [Concomitant]
     Active Substance: DULOXETINE

REACTIONS (1)
  - Urinary tract infection [Unknown]

NARRATIVE: CASE EVENT DATE: 20221101
